FAERS Safety Report 7585799-8 (Version None)
Quarter: 2011Q2

REPORT INFORMATION
  Report Type: 
  Country: None (occurrence: None)
  Receive Date: 20110629
  Receipt Date: 20110629
  Transmission Date: 20111010
  Serious: Yes (Death)
  Sender: FDA-Public Use
  Company Number: None

PATIENT
  Age: 84 Year
  Sex: Male
  Weight: 78.4723 kg

DRUGS (11)
  1. MAGIC MOUTHWASH [Concomitant]
  2. FLOMAX [Concomitant]
  3. PEPCID [Concomitant]
  4. COLACE [Concomitant]
  5. SENOKOT [Concomitant]
  6. TARCEVA [Suspect]
     Indication: NON-SMALL CELL LUNG CANCER
     Dosage: 150MG,DAILY, ORAL
     Route: 048
     Dates: start: 20110406
  7. AVODART [Concomitant]
  8. RADIATION TREATMENT [Concomitant]
  9. MS CONTIN [Concomitant]
  10. PERCOCET [Concomitant]
  11. SINEMET [Concomitant]

REACTIONS (2)
  - PNEUMONIA [None]
  - BACK PAIN [None]
